FAERS Safety Report 10100716 (Version 1)
Quarter: 2014Q2

REPORT INFORMATION
  Report Type: Spontaneous
  Country: US (occurrence: US)
  Receive Date: 20140423
  Receipt Date: 20140423
  Transmission Date: 20141212
  Serious: Yes (Other)
  Sender: FDA-Public Use
  Company Number: US-MYLANLABS-2014S1008773

PATIENT
  Sex: Male

DRUGS (2)
  1. BUPROPION [Suspect]
     Indication: DRUG ABUSE
     Dosage: MORE THAN 8 TABLETS SNORTED AT ONCE
     Route: 045
  2. BUPROPION [Suspect]
     Indication: OFF LABEL USE
     Dosage: MORE THAN 8 TABLETS SNORTED AT ONCE
     Route: 045

REACTIONS (3)
  - Drug abuse [Unknown]
  - Intentional product misuse [Unknown]
  - Convulsion [Unknown]
